FAERS Safety Report 11560145 (Version 2)
Quarter: 2015Q4

REPORT INFORMATION
  Report Type: Report from Study
  Country: GB (occurrence: GB)
  Receive Date: 20150928
  Receipt Date: 20151130
  Transmission Date: 20160304
  Serious: Yes (Hospitalization, Other)
  Sender: FDA-Public Use
  Company Number: GB-ROCHE-ITM201504IM014167

PATIENT
  Sex: Male

DRUGS (1)
  1. ESBRIET [Suspect]
     Active Substance: PIRFENIDONE
     Indication: IDIOPATHIC PULMONARY FIBROSIS
     Dosage: 2 CAPSULES THRICE DAILY
     Route: 048
     Dates: start: 20140915

REACTIONS (17)
  - Dyspnoea [Not Recovered/Not Resolved]
  - Diarrhoea [Unknown]
  - Nausea [Recovered/Resolved]
  - Feeling abnormal [Unknown]
  - Body temperature abnormal [Unknown]
  - Cough [Unknown]
  - Retching [Recovering/Resolving]
  - Liver function test abnormal [Recovered/Resolved]
  - Blood test abnormal [Unknown]
  - Cough [Recovering/Resolving]
  - Malaise [Recovered/Resolved]
  - Vomiting [Unknown]
  - Ileostomy [Unknown]
  - Cough [Not Recovered/Not Resolved]
  - Colitis ulcerative [Unknown]
  - Renal impairment [Unknown]
  - Abdominal pain [Unknown]
